FAERS Safety Report 7526221-7 (Version None)
Quarter: 2011Q2

REPORT INFORMATION
  Report Type: 
  Country: None (occurrence: None)
  Receive Date: 20110603
  Receipt Date: 20110603
  Transmission Date: 20111010
  Serious: No
  Sender: FDA-Public Use
  Company Number: None

PATIENT
  Sex: Female

DRUGS (1)
  1. ENBREL [Suspect]
     Indication: RHEUMATOID ARTHRITIS
     Dosage: 50MG 1QW SQ
     Route: 058
     Dates: start: 20110311, end: 20110521

REACTIONS (2)
  - INJECTION SITE RASH [None]
  - INJECTION SITE PRURITUS [None]
